FAERS Safety Report 5527188-3 (Version None)
Quarter: 2007Q4

REPORT INFORMATION
  Report Type: 
  Country: None (occurrence: None)
  Receive Date: 20071121
  Receipt Date: 20071115
  Transmission Date: 20080405
  Serious: Yes (Death, Hospitalization)
  Sender: FDA-Public Use
  Company Number: 2007SP022760

PATIENT
  Age: 63 Year
  Sex: Female
  Weight: 98.5 kg

DRUGS (1)
  1. TEMODAR [Suspect]
     Indication: GLIOBLASTOMA MULTIFORME
     Dosage: ; PO
     Route: 048
     Dates: start: 20070905, end: 20071016

REACTIONS (2)
  - DYSPNOEA [None]
  - PLATELET COUNT DECREASED [None]
